FAERS Safety Report 5047247-1 (Version None)
Quarter: 2006Q3

REPORT INFORMATION
  Report Type: 
  Country: None (occurrence: None)
  Receive Date: 20060703
  Receipt Date: 20060616
  Transmission Date: 20061208
  Serious: Yes (Death)
  Sender: FDA-Public Use
  Company Number: 2006RL000221

PATIENT
  Age: 80 Year
  Sex: Female

DRUGS (1)
  1. PROPAFENONE HCL [Suspect]
     Dosage: 70 MG; TID; IV;  150 MG; PO
     Route: 042

REACTIONS (3)
  - BRADYCARDIA [None]
  - CARDIAC ARREST [None]
  - OVERDOSE [None]
